FAERS Safety Report 19880313 (Version 1)
Quarter: 2021Q3

REPORT INFORMATION
  Report Type: Spontaneous
  Country: CA (occurrence: CA)
  Receive Date: 20210925
  Receipt Date: 20210925
  Transmission Date: 20211014
  Serious: Yes (Other)
  Sender: FDA-Public Use
  Company Number: CA-CELLTRION INC.-2021CA013105

PATIENT

DRUGS (1)
  1. INFLECTRA [Suspect]
     Active Substance: INFLIXIMAB-DYYB
     Indication: CROHN^S DISEASE
     Dosage: 700 MG, 1 EVERY 6 WEEKS
     Route: 042

REACTIONS (7)
  - Basal cell carcinoma [Unknown]
  - Vitamin K decreased [Unknown]
  - Haematocrit decreased [Unknown]
  - Haemoglobin decreased [Unknown]
  - Vitamin D decreased [Unknown]
  - Joint swelling [Unknown]
  - Peripheral swelling [Unknown]
